FAERS Safety Report 7075433-8 (Version None)
Quarter: 2010Q4

REPORT INFORMATION
  Report Type: 
  Country: None (occurrence: None)
  Receive Date: 20101030
  Receipt Date: 20100930
  Transmission Date: 20110411
  Serious: No
  Sender: FDA-Public Use
  Company Number: US-WYE-H17351410

PATIENT
  Age: 25 Year
  Sex: Female
  Weight: 61.29 kg

DRUGS (1)
  1. ADVIL PM [Suspect]
     Indication: BACK PAIN
     Dosage: 2 CAPLETS AS NEEDED
     Route: 048
     Dates: start: 20100830, end: 20100902

REACTIONS (1)
  - DRUG EFFECT DECREASED [None]
